FAERS Safety Report 7225565-6 (Version None)
Quarter: 2011Q1

REPORT INFORMATION
  Report Type: 
  Country: None (occurrence: None)
  Receive Date: 20110113
  Receipt Date: 20101230
  Transmission Date: 20110831
  Serious: Yes (Hospitalization)
  Sender: FDA-Public Use
  Company Number: US-SANOFI-AVENTIS-2011SA000125

PATIENT
  Age: 76 Year
  Sex: Male
  Weight: 87.2 kg

DRUGS (15)
  1. PLAVIX [Suspect]
     Indication: CAROTID ARTERY STENT INSERTION
     Route: 048
     Dates: start: 20100801, end: 20100801
  2. PLAVIX [Suspect]
     Route: 048
     Dates: start: 20101209
  3. PLAVIX [Suspect]
     Route: 048
     Dates: start: 20100801, end: 20100801
  4. PLAVIX [Suspect]
     Route: 048
     Dates: start: 20100801, end: 20101201
  5. CARVEDILOL [Concomitant]
  6. PLAVIX [Suspect]
     Route: 048
     Dates: start: 20101209
  7. ASPIRIN [Concomitant]
  8. DIGOXIN [Concomitant]
  9. GABAPENTIN [Concomitant]
  10. PLAVIX [Suspect]
     Route: 048
     Dates: start: 20100801, end: 20101201
  11. SIMVASTATIN [Concomitant]
  12. PLAVIX [Suspect]
     Route: 048
     Dates: start: 20100801, end: 20100801
  13. PLAVIX [Suspect]
     Route: 048
     Dates: start: 20101209
  14. PLAVIX [Suspect]
     Route: 048
     Dates: start: 20100801, end: 20101201
  15. COUMADIN [Concomitant]

REACTIONS (5)
  - CONFUSIONAL STATE [None]
  - FALL [None]
  - ASTHENIA [None]
  - GAIT DISTURBANCE [None]
  - OVERDOSE [None]
